FAERS Safety Report 9012445 (Version 1)
Quarter: 2013Q1

REPORT INFORMATION
  Report Type: Spontaneous
  Country: US (occurrence: US)
  Receive Date: 20130114
  Receipt Date: 20130114
  Transmission Date: 20140127
  Serious: No
  Sender: FDA-Public Use
  Company Number: US-TEVA-312776USA

PATIENT
  Sex: Male

DRUGS (1)
  1. DORZOLAMIDE [Suspect]
     Dosage: 2%
     Route: 047
     Dates: start: 201107, end: 2011

REACTIONS (8)
  - Irritability [Unknown]
  - Eye inflammation [Unknown]
  - Eye pruritus [Unknown]
  - Eye discharge [Unknown]
  - Swelling face [Unknown]
  - Eye irritation [Unknown]
  - Ocular hyperaemia [Unknown]
  - Eye swelling [Unknown]
